FAERS Safety Report 26152536 (Version 1)
Quarter: 2025Q4

REPORT INFORMATION
  Report Type: Spontaneous
  Country: US (occurrence: US)
  Receive Date: 20251214
  Receipt Date: 20251214
  Transmission Date: 20260118
  Serious: No
  Sender: Atnahs Healthcare
  Company Number: US-ATNAHS LIMITED-ATNAHS20201207039

PATIENT

DRUGS (77)
  1. VALIUM [Suspect]
     Active Substance: DIAZEPAM
     Indication: Product used for unknown indication
     Dosage: UNK
     Route: 065
  2. RITUXAN [Suspect]
     Active Substance: RITUXIMAB
     Indication: Stiff person syndrome
     Dosage: 446 MILLIGRAM
     Route: 042
     Dates: start: 20130211, end: 20130211
  3. RITUXAN [Suspect]
     Active Substance: RITUXIMAB
     Indication: Polycythaemia
     Dosage: 446 MILLIGRAM
     Route: 042
     Dates: start: 20130212, end: 20130212
  4. RITUXAN [Suspect]
     Active Substance: RITUXIMAB
     Indication: Polycythaemia
     Dosage: 451 MILLIGRAM
     Route: 042
     Dates: start: 20130219
  5. RITUXAN [Suspect]
     Active Substance: RITUXIMAB
     Indication: Extrapyramidal disorder
     Dosage: 893 MILLIGRAM
     Route: 042
  6. RITUXAN [Suspect]
     Active Substance: RITUXIMAB
     Indication: Movement disorder
     Dosage: 1000 MILLIGRAM
     Route: 042
  7. RITUXAN [Suspect]
     Active Substance: RITUXIMAB
     Dosage: 889 MILLIGRAM
     Route: 042
     Dates: start: 20160829, end: 20160829
  8. RITUXAN [Suspect]
     Active Substance: RITUXIMAB
     Dosage: 896 MILLIGRAM
     Route: 042
     Dates: start: 20160229
  9. RITUXAN [Suspect]
     Active Substance: RITUXIMAB
     Dosage: 904 MILLIGRAM
     Route: 042
     Dates: start: 20170228
  10. RITUXAN [Suspect]
     Active Substance: RITUXIMAB
     Dosage: 900 MILLIGRAM
     Route: 042
  11. RITUXAN [Suspect]
     Active Substance: RITUXIMAB
     Dosage: FREQUENCY TIME : 6 FREQUENCY TIME UNIT : MONTHS
     Route: 042
     Dates: start: 20190124
  12. RITUXAN [Suspect]
     Active Substance: RITUXIMAB
     Dosage: 900 MILLIGRAM
     Route: 042
  13. RITUXAN [Suspect]
     Active Substance: RITUXIMAB
     Route: 042
     Dates: start: 20200123
  14. RITUXAN [Suspect]
     Active Substance: RITUXIMAB
     Dosage: FREQUENCY TIME : 6 FREQUENCY TIME UNIT : MONTHS
     Route: 042
     Dates: start: 201207
  15. RITUXAN [Suspect]
     Active Substance: RITUXIMAB
     Dosage: 22/FEB/2018, 29/JAN/2019, 07/JAN/2021 (900 MG)
     Route: 042
     Dates: start: 20200723
  16. RITUXAN [Suspect]
     Active Substance: RITUXIMAB
     Dosage: 693 MILLIGRAM
     Route: 042
     Dates: start: 20120309, end: 20120309
  17. RITUXAN [Suspect]
     Active Substance: RITUXIMAB
     Dosage: 200 MILLIGRAM
     Route: 042
     Dates: start: 20120312, end: 20120312
  18. RITUXAN [Suspect]
     Active Substance: RITUXIMAB
     Route: 042
     Dates: start: 20120320, end: 20120320
  19. RITUXAN [Suspect]
     Active Substance: RITUXIMAB
     Dosage: 449 MILLIGRAM
     Route: 042
     Dates: start: 20120321, end: 20120321
  20. RITUXAN [Suspect]
     Active Substance: RITUXIMAB
     Dosage: 446 MILLIGRAM
     Route: 042
     Dates: start: 20120730
  21. RITUXAN [Suspect]
     Active Substance: RITUXIMAB
     Dosage: 453 MILLIGRAM
     Route: 042
     Dates: start: 20120806
  22. RITUXAN [Suspect]
     Active Substance: RITUXIMAB
     Dosage: 375 MILLIGRAM (1 IN 6 MONTHS)
     Route: 042
     Dates: start: 201207
  23. RITUXAN [Suspect]
     Active Substance: RITUXIMAB
     Dosage: 889 MILLIGRAM
     Route: 042
  24. DIAZEPAM [Concomitant]
     Active Substance: DIAZEPAM
     Indication: Muscle spasms
     Dosage: 2 IN 1 DAY
     Route: 065
     Dates: start: 2008
  25. VYVANSE [Concomitant]
     Active Substance: LISDEXAMFETAMINE DIMESYLATE
     Indication: Attention deficit hyperactivity disorder
     Dosage: UNK
     Route: 065
  26. GABAPENTIN [Concomitant]
     Active Substance: GABAPENTIN
     Indication: Product used for unknown indication
     Dosage: UNK
     Route: 065
  27. AMARYL [Concomitant]
     Active Substance: GLIMEPIRIDE
     Indication: Product used for unknown indication
     Dosage: UNK
     Route: 065
  28. PREVACID [Concomitant]
     Active Substance: LANSOPRAZOLE
     Indication: Product used for unknown indication
     Dosage: UNK
     Route: 065
  29. ZANAFLEX [Concomitant]
     Active Substance: TIZANIDINE HYDROCHLORIDE
     Indication: Product used for unknown indication
     Dosage: UNK
     Route: 065
  30. JANUVIA [Concomitant]
     Active Substance: SITAGLIPTIN PHOSPHATE
     Indication: Product used for unknown indication
     Dosage: UNK
     Route: 065
  31. BACLOFEN [Concomitant]
     Active Substance: BACLOFEN
     Indication: Product used for unknown indication
     Dosage: UNK
     Route: 065
  32. LEXAPRO [Concomitant]
     Active Substance: ESCITALOPRAM OXALATE
     Indication: Product used for unknown indication
     Dosage: UNK
     Route: 065
  33. TYLENOL [Concomitant]
     Active Substance: ACETAMINOPHEN
     Indication: Product used for unknown indication
     Dosage: 1000 MILLIGRAM
     Route: 048
     Dates: start: 20120309
  34. TYLENOL [Concomitant]
     Active Substance: ACETAMINOPHEN
     Dosage: 1000 MILLIGRAM
     Route: 048
     Dates: start: 20120312
  35. TYLENOL [Concomitant]
     Active Substance: ACETAMINOPHEN
     Dosage: 1000 MILLIGRAM
     Route: 048
     Dates: start: 20120320
  36. TYLENOL [Concomitant]
     Active Substance: ACETAMINOPHEN
     Dosage: 1000 MILLIGRAM
     Route: 048
     Dates: start: 20120321
  37. TYLENOL [Concomitant]
     Active Substance: ACETAMINOPHEN
     Dosage: 1000 MILLIGRAM
     Route: 048
     Dates: start: 20120806
  38. TYLENOL [Concomitant]
     Active Substance: ACETAMINOPHEN
     Dosage: 1000 MILLIGRAM
     Route: 048
     Dates: start: 20120807
  39. ACETAMINOPHEN [Concomitant]
     Active Substance: ACETAMINOPHEN
     Indication: Product used for unknown indication
     Dosage: 1000 MILLIGRAM
     Route: 048
     Dates: start: 20160829
  40. ACETAMINOPHEN [Concomitant]
     Active Substance: ACETAMINOPHEN
     Dosage: 1000 MILLIGRAM
     Route: 048
     Dates: start: 20150226
  41. ACETAMINOPHEN [Concomitant]
     Active Substance: ACETAMINOPHEN
     Dosage: 1000 MILLIGRAM
     Route: 048
     Dates: start: 20120309
  42. ACETAMINOPHEN [Concomitant]
     Active Substance: ACETAMINOPHEN
     Dosage: 1000 MILLIGRAM
     Route: 048
     Dates: start: 20120312
  43. ACETAMINOPHEN [Concomitant]
     Active Substance: ACETAMINOPHEN
     Dosage: 1000 MILLIGRAM
     Route: 048
     Dates: start: 20120320
  44. ACETAMINOPHEN [Concomitant]
     Active Substance: ACETAMINOPHEN
     Dosage: 1000 MILLIGRAM
     Route: 048
     Dates: start: 20120321
  45. ACETAMINOPHEN [Concomitant]
     Active Substance: ACETAMINOPHEN
     Dosage: 1000 MILLIGRAM
     Route: 048
     Dates: start: 20120806
  46. ACETAMINOPHEN [Concomitant]
     Active Substance: ACETAMINOPHEN
     Dosage: 1000 MILLIGRAM
     Route: 048
     Dates: start: 20120807
  47. ACETAMINOPHEN [Concomitant]
     Active Substance: ACETAMINOPHEN
     Dosage: 1000 MILLIGRAM
     Route: 048
     Dates: start: 20170228
  48. ACETAMINOPHEN [Concomitant]
     Active Substance: ACETAMINOPHEN
     Dosage: 1000 MILLIGRAM
     Route: 048
  49. RANITIDINE [Concomitant]
     Active Substance: RANITIDINE
     Indication: Product used for unknown indication
     Dosage: 150 MILLIGRAM
     Route: 048
  50. RANITIDINE [Concomitant]
     Active Substance: RANITIDINE
     Dosage: 50 MILLIGRAM
     Route: 042
     Dates: start: 20160829, end: 20160829
  51. RANITIDINE [Concomitant]
     Active Substance: RANITIDINE
     Dosage: 50 MILLIGRAM
     Route: 042
     Dates: start: 20120309
  52. RANITIDINE [Concomitant]
     Active Substance: RANITIDINE
     Dosage: 50 MILLIGRAM
     Route: 042
     Dates: start: 20120320, end: 20120320
  53. RANITIDINE [Concomitant]
     Active Substance: RANITIDINE
     Dosage: 50 MILLIGRAM
     Route: 042
     Dates: start: 20120321, end: 20120321
  54. RANITIDINE [Concomitant]
     Active Substance: RANITIDINE
     Dosage: 50 MILLIGRAM
     Route: 042
     Dates: start: 20160829, end: 20160829
  55. RANITIDINE [Concomitant]
     Active Substance: RANITIDINE
     Dosage: 50 MILLIGRAM
     Route: 042
     Dates: start: 20150226, end: 20150226
  56. RANITIDINE [Concomitant]
     Active Substance: RANITIDINE
     Dosage: 50 MILLIGRAM
     Route: 042
     Dates: start: 20120312, end: 20120312
  57. DIPHENHYDRAMINE [Concomitant]
     Active Substance: DIPHENHYDRAMINE
     Indication: Product used for unknown indication
     Dosage: 25 MILLIGRAM
     Route: 048
  58. DIPHENHYDRAMINE [Concomitant]
     Active Substance: DIPHENHYDRAMINE
     Dosage: 50 MILLIGRAM
     Route: 042
     Dates: start: 20160829, end: 20160829
  59. DIPHENHYDRAMINE [Concomitant]
     Active Substance: DIPHENHYDRAMINE
     Dosage: 50 MILLIGRAM
     Route: 042
     Dates: start: 20150226, end: 20150226
  60. DIPHENHYDRAMINE [Concomitant]
     Active Substance: DIPHENHYDRAMINE
     Dosage: 25 MILLIGRAM
     Route: 048
     Dates: start: 20120309
  61. DIPHENHYDRAMINE [Concomitant]
     Active Substance: DIPHENHYDRAMINE
     Dosage: 25 MILLIGRAM
     Route: 042
     Dates: start: 20120312, end: 20120312
  62. DIPHENHYDRAMINE [Concomitant]
     Active Substance: DIPHENHYDRAMINE
     Dosage: 25 MILLIGRAM
     Route: 042
     Dates: start: 20120309, end: 20120309
  63. DIPHENHYDRAMINE [Concomitant]
     Active Substance: DIPHENHYDRAMINE
     Dosage: 25 MILLI-INTERNATIONAL UNIT
     Route: 042
     Dates: start: 20120320, end: 20120320
  64. DIPHENHYDRAMINE [Concomitant]
     Active Substance: DIPHENHYDRAMINE
     Dosage: 25 MILLIGRAM
     Route: 042
     Dates: start: 20120321, end: 20120321
  65. DIPHENHYDRAMINE [Concomitant]
     Active Substance: DIPHENHYDRAMINE
     Dosage: 50 MILLIGRAM
     Route: 042
     Dates: start: 20170228, end: 20170228
  66. DIPHENHYDRAMINE [Concomitant]
     Active Substance: DIPHENHYDRAMINE
     Dosage: 25 MILLIGRAM
     Route: 048
  67. HYDROCORTISONE [Concomitant]
     Active Substance: HYDROCORTISONE
     Indication: Product used for unknown indication
     Dosage: 100 MILLIGRAM
     Route: 042
     Dates: start: 20160829, end: 20160829
  68. HYDROCORTISONE [Concomitant]
     Active Substance: HYDROCORTISONE
     Dosage: 100 MILLIGRAM
     Route: 042
     Dates: start: 20150226, end: 20150226
  69. HYDROCORTISONE [Concomitant]
     Active Substance: HYDROCORTISONE
     Dosage: 100 MILLIGRAM
     Route: 042
     Dates: start: 20120320, end: 20120320
  70. HYDROCORTISONE [Concomitant]
     Active Substance: HYDROCORTISONE
     Dosage: 100 MILLIGRAM
     Route: 042
     Dates: start: 20120309
  71. HYDROCORTISONE [Concomitant]
     Active Substance: HYDROCORTISONE
     Dosage: 100 MILLIGRAM
     Route: 042
     Dates: start: 20120312, end: 20120312
  72. HYDROCORTISONE [Concomitant]
     Active Substance: HYDROCORTISONE
     Dosage: 100 MILLIGRAM
     Route: 042
     Dates: start: 20120321, end: 20120321
  73. HYDROCORTISONE [Concomitant]
     Active Substance: HYDROCORTISONE
     Dosage: 100 MILLIGRAM
     Route: 042
     Dates: start: 20170228
  74. HYDROCORTISONE [Concomitant]
     Active Substance: HYDROCORTISONE
     Dosage: 100 MILLIGRAM
     Route: 042
  75. FAMOTIDINE [Concomitant]
     Active Substance: FAMOTIDINE
     Indication: Product used for unknown indication
     Dosage: 20 MILLIGRAM
     Route: 042
     Dates: start: 20170228, end: 20170228
  76. FAMOTIDINE [Concomitant]
     Active Substance: FAMOTIDINE
     Dosage: 20 MILLIGRAM
     Route: 042
  77. TRESIBA [Concomitant]
     Active Substance: INSULIN DEGLUDEC
     Indication: Type 2 diabetes mellitus
     Dosage: 35 UNITS DAILY
     Route: 058
     Dates: start: 2009

REACTIONS (14)
  - Pruritus [Recovered/Resolved]
  - Urticaria [Unknown]
  - Erythema [Recovered/Resolved]
  - Skin warm [Recovered/Resolved]
  - Gait inability [Unknown]
  - Vision blurred [Unknown]
  - Dysgraphia [Unknown]
  - Balance disorder [Unknown]
  - General physical health deterioration [Unknown]
  - Performance status decreased [Unknown]
  - Off label use [Unknown]
  - Cerebellar ataxia [Not Recovered/Not Resolved]
  - Nystagmus [Unknown]
  - Off label use [Unknown]

NARRATIVE: CASE EVENT DATE: 20120309
